FAERS Safety Report 24784869 (Version 1)
Quarter: 2024Q4

REPORT INFORMATION
  Report Type: Spontaneous
  Country: NL (occurrence: NL)
  Receive Date: 20241228
  Receipt Date: 20241228
  Transmission Date: 20250115
  Serious: Yes (Other)
  Sender: TEVA
  Company Number: None

PATIENT
  Age: 78 Year
  Sex: Female
  Weight: 82 kg

DRUGS (3)
  1. CIPROFLOXACIN [Suspect]
     Active Substance: CIPROFLOXACIN
     Indication: Urinary tract infection
     Dosage: 2D1T, BRAND NAME NOT SPECIFIED
     Route: 048
     Dates: start: 20241010
  2. PROMETHAZINE [Concomitant]
     Active Substance: PROMETHAZINE HYDROCHLORIDE
     Indication: Product used for unknown indication
     Dosage: PROMETHAZINE (AS HCL) / BRAND NAME NOT SPECIFIED
     Route: 048
  3. GLUCOPHAGE [Concomitant]
     Active Substance: METFORMIN HYDROCHLORIDE
     Indication: Product used for unknown indication
     Dosage: TABLET FILM COVER
     Route: 065

REACTIONS (3)
  - Cardiac failure [Recovering/Resolving]
  - Hypervolaemia [Recovering/Resolving]
  - Dyspnoea [Recovering/Resolving]
